FAERS Safety Report 18591564 (Version 1)
Quarter: 2020Q4

REPORT INFORMATION
  Report Type: Spontaneous
  Country: FI (occurrence: FI)
  Receive Date: 20201208
  Receipt Date: 20201208
  Transmission Date: 20210114
  Serious: Yes (Other)
  Sender: FDA-Public Use
  Company Number: FI-JNJFOC-20201204938

PATIENT
  Age: 35 Year
  Sex: Male

DRUGS (1)
  1. TOPIRAMATE. [Suspect]
     Active Substance: TOPIRAMATE
     Indication: BIPOLAR DISORDER
     Route: 048
     Dates: start: 2014

REACTIONS (6)
  - Product use in unapproved indication [Unknown]
  - Weight decreased [Unknown]
  - Off label use [Unknown]
  - Therapeutic response unexpected [Unknown]
  - Disturbance in attention [Unknown]
  - Psychotic symptom [Unknown]
